FAERS Safety Report 6535875-3 (Version None)
Quarter: 2010Q1

REPORT INFORMATION
  Report Type: 
  Country: None (occurrence: None)
  Receive Date: 20100106
  Receipt Date: 20091222
  Transmission Date: 20100710
  Serious: Yes (Death)
  Sender: FDA-Public Use
  Company Number: 1-21137470

PATIENT
  Age: 77 Year
  Sex: Male

DRUGS (1)
  1. FLO-PRED [Suspect]
     Indication: PYODERMA GANGRENOSUM
     Dosage: 40 MG, DAILY

REACTIONS (3)
  - AORTIC ANEURYSM RUPTURE [None]
  - BACK PAIN [None]
  - HYPOTENSION [None]
